FAERS Safety Report 8901032 (Version 1)
Quarter: 2012Q4

REPORT INFORMATION
  Report Type: Report from Study
  Country: CA (occurrence: CA)
  Receive Date: 20121109
  Receipt Date: 20121109
  Transmission Date: 20130627
  Serious: Yes (Death, Other)
  Sender: FDA-Public Use
  Company Number: CA-ROCHE-795339

PATIENT
  Age: 44 Year
  Sex: Female
  Weight: 95.79 kg

DRUGS (8)
  1. BEVACIZUMAB [Suspect]
     Indication: BREAST CANCER
     Route: 042
  2. BEVACIZUMAB [Suspect]
     Route: 042
     Dates: start: 20110513, end: 20120803
  3. HYDROCHLOROTHIAZIDE [Concomitant]
     Dosage: REPORTED AS HYDROCHLORTHIAZIDE
     Route: 065
  4. ATENOLOL [Concomitant]
  5. GRANISETRON [Concomitant]
  6. METOCLOPRAMIDE [Concomitant]
  7. DEXAMETHASONE [Concomitant]
  8. ZOPICLONE [Concomitant]

REACTIONS (2)
  - Carbohydrate antigen 15-3 increased [Unknown]
  - Death [Fatal]
